FAERS Safety Report 10412444 (Version 1)
Quarter: 2014Q2

REPORT INFORMATION
  Report Type: Spontaneous
  Country: US (occurrence: None)
  Receive Date: 20140604
  Receipt Date: 20140604
  Transmission Date: 20141212
  Serious: Yes (Other)
  Sender: FDA-Public Use
  Company Number: 20100405CINRY1433

PATIENT
  Age: 19 Year
  Sex: Female

DRUGS (1)
  1. CINRYZE [Suspect]
     Indication: HEREDITARY ANGIOEDEMA
     Route: 042
     Dates: start: 20100404, end: 20100404

REACTIONS (6)
  - Hereditary angioedema [None]
  - Off label use [None]
  - Hypotension [None]
  - Pyrexia [None]
  - Pain [None]
  - Peripheral swelling [None]
